FAERS Safety Report 23076265 (Version 1)
Quarter: 2023Q4

REPORT INFORMATION
  Report Type: Spontaneous
  Country: US (occurrence: US)
  Receive Date: 20231017
  Receipt Date: 20231017
  Transmission Date: 20240110
  Serious: Yes (Life-Threatening, Hospitalization, Other)
  Sender: FDA-Public Use
  Company Number: US-MLMSERVICE-20231005-4591553-1

PATIENT
  Age: 26 Year
  Sex: Female

DRUGS (2)
  1. HALDOL [Interacting]
     Active Substance: HALOPERIDOL
     Indication: Agitation
     Route: 030
  2. METHAMPHETAMINE [Interacting]
     Active Substance: METHAMPHETAMINE
     Indication: Product used for unknown indication
     Route: 065

REACTIONS (7)
  - Cardiac arrest [Unknown]
  - Disseminated intravascular coagulation [Unknown]
  - Cardiopulmonary failure [Unknown]
  - Cardiac failure congestive [Unknown]
  - Neuroleptic malignant syndrome [Unknown]
  - Rhabdomyolysis [Unknown]
  - Drug interaction [Unknown]
